FAERS Safety Report 18777965 (Version 2)
Quarter: 2021Q1

REPORT INFORMATION
  Report Type: Spontaneous
  Country: DE (occurrence: DE)
  Receive Date: 20210123
  Receipt Date: 20210319
  Transmission Date: 20210419
  Serious: Yes (Hospitalization, Other)
  Sender: FDA-Public Use
  Company Number: NVSC2021DE015437

PATIENT
  Age: 42 Year
  Sex: Female
  Weight: 90 kg

DRUGS (1)
  1. GILENYA [Suspect]
     Active Substance: FINGOLIMOD HYDROCHLORIDE
     Indication: MULTIPLE SCLEROSIS
     Dosage: 0.5 MG, QD
     Route: 048
     Dates: start: 201606

REACTIONS (30)
  - Ligament sprain [Unknown]
  - Haemangioma of liver [Unknown]
  - Bladder disorder [Unknown]
  - Hypoglycaemia [Unknown]
  - Palpitations [Unknown]
  - Dizziness [Unknown]
  - Cardiac failure [Unknown]
  - Bronchial obstruction [Unknown]
  - Uterine leiomyoma [Unknown]
  - Arrhythmia [Recovered/Resolved]
  - Atrial tachycardia [Recovered/Resolved]
  - Spinal disorder [Unknown]
  - Radiculopathy [Unknown]
  - Spinal osteoarthritis [Unknown]
  - Bronchitis chronic [Unknown]
  - Sacroiliac joint dysfunction [Unknown]
  - Dyspepsia [Unknown]
  - Vitamin D deficiency [Unknown]
  - Urinary incontinence [Unknown]
  - Dumping syndrome [Unknown]
  - Impaired gastric emptying [Unknown]
  - Menstrual disorder [Unknown]
  - Fatigue [Unknown]
  - Multiple sclerosis relapse [Unknown]
  - Hypertension [Not Recovered/Not Resolved]
  - Gastritis [Unknown]
  - Scoliosis [Unknown]
  - Progesterone decreased [Unknown]
  - Defaecation disorder [Unknown]
  - Dyspnoea [Unknown]

NARRATIVE: CASE EVENT DATE: 2016
